FAERS Safety Report 9632127 (Version 1)
Quarter: 2013Q4

REPORT INFORMATION
  Report Type: Spontaneous
  Country: US (occurrence: US)
  Receive Date: 20131018
  Receipt Date: 20131018
  Transmission Date: 20140711
  Serious: No
  Sender: FDA-Public Use
  Company Number: US-PFIZER INC-2013296073

PATIENT
  Sex: Male

DRUGS (4)
  1. HALOPERIDOL [Suspect]
     Dosage: UNK
  2. IBUPROFEN [Suspect]
     Dosage: UNK
  3. GEODON [Suspect]
     Dosage: UNK
  4. ZYPREXA [Suspect]
     Dosage: UNK

REACTIONS (1)
  - Drug hypersensitivity [Unknown]
